FAERS Safety Report 22010005 (Version 1)
Quarter: 2023Q1

REPORT INFORMATION
  Report Type: Spontaneous
  Country: US (occurrence: US)
  Receive Date: 20230220
  Receipt Date: 20230220
  Transmission Date: 20230417
  Serious: No
  Sender: FDA-Public Use
  Company Number: US-AUROBINDO-AUR-APL-2022-042561

PATIENT
  Age: 4 Year
  Sex: Female
  Weight: 27.2 kg

DRUGS (1)
  1. AMOXICILLIN [Suspect]
     Active Substance: AMOXICILLIN
     Indication: Oropharyngeal pain
     Dosage: 9 MILLILITER, TWO TIMES A DAY
     Route: 065

REACTIONS (2)
  - Product taste abnormal [Unknown]
  - Product dose omission issue [Unknown]
